FAERS Safety Report 8003729-1 (Version None)
Quarter: 2011Q4

REPORT INFORMATION
  Report Type: 
  Country: None (occurrence: None)
  Receive Date: 20111222
  Receipt Date: 20111215
  Transmission Date: 20120403
  Serious: Yes (Hospitalization)
  Sender: FDA-Public Use
  Company Number: US-CELGENEUS-163-21880-11083364

PATIENT
  Sex: Male

DRUGS (3)
  1. ONDANSETRON [Concomitant]
     Indication: NAUSEA
     Dosage: 8 MILLIGRAM
     Route: 048
     Dates: start: 20110801
  2. REVLIMID [Suspect]
  3. REVLIMID [Suspect]
     Indication: MYELOPROLIFERATIVE DISORDER
     Dosage: 5 MILLIGRAM
     Route: 048
     Dates: start: 20110722

REACTIONS (3)
  - NAUSEA [None]
  - NEPHROLITHIASIS [None]
  - ABDOMINAL DISCOMFORT [None]
